FAERS Safety Report 8829118 (Version 1)
Quarter: 2012Q4

REPORT INFORMATION
  Report Type: Spontaneous
  Country: US (occurrence: None)
  Receive Date: 20121005
  Receipt Date: 20121005
  Transmission Date: 20130627
  Serious: Yes (Hospitalization, Disabling, Other)
  Sender: FDA-Public Use
  Company Number: None

PATIENT
  Age: 87 Year
  Sex: Female
  Weight: 72.58 kg

DRUGS (1)
  1. FRAGMIN [Suspect]
     Indication: BLOOD DISORDER
     Dosage: MG 15_000 1 a day 
15_000 5 days before
     Dates: start: 20130208, end: 20120213

REACTIONS (1)
  - Drug ineffective [None]
